FAERS Safety Report 10562706 (Version 1)
Quarter: 2014Q4

REPORT INFORMATION
  Report Type: Spontaneous
  Country: US (occurrence: None)
  Receive Date: 20141103
  Receipt Date: 20141103
  Transmission Date: 20150529
  Serious: Yes (Hospitalization)
  Sender: FDA-Public Use
  Company Number: None

PATIENT
  Age: 89 Year
  Sex: Female
  Weight: 59.7 kg

DRUGS (13)
  1. ZOLPIDEM [Concomitant]
     Active Substance: ZOLPIDEM\ZOLPIDEM TARTRATE
  2. FERROUS SULFATE [Concomitant]
     Active Substance: FERROUS SULFATE\FERROUS SULFATE, DRIED
  3. IPRATROPIUM [Concomitant]
     Active Substance: IPRATROPIUM
  4. SPIRONOLACTONE. [Concomitant]
     Active Substance: SPIRONOLACTONE
  5. FUROSEMIDE. [Concomitant]
     Active Substance: FUROSEMIDE
  6. APAP [Concomitant]
     Active Substance: ACETAMINOPHEN
  7. NORCO [Concomitant]
     Active Substance: ACETAMINOPHEN\HYDROCODONE BITARTRATE
  8. ALBUTEROL. [Concomitant]
     Active Substance: ALBUTEROL
  9. CARVEDILOL. [Concomitant]
     Active Substance: CARVEDILOL
  10. ELIQUIS [Suspect]
     Active Substance: APIXABAN
     Route: 048
  11. NITROSTAT [Concomitant]
     Active Substance: NITROGLYCERIN
  12. ADVAIR HFA [Concomitant]
     Active Substance: FLUTICASONE PROPIONATE\SALMETEROL XINAFOATE
  13. BYSTOLIC [Concomitant]
     Active Substance: NEBIVOLOL HYDROCHLORIDE

REACTIONS (5)
  - Vomiting [None]
  - Pyrexia [None]
  - Chills [None]
  - Haematochezia [None]
  - Nausea [None]

NARRATIVE: CASE EVENT DATE: 20141029
